FAERS Safety Report 4575918-X (Version None)
Quarter: 2005Q1

REPORT INFORMATION
  Report Type: 
  Country: None (occurrence: None)
  Receive Date: 20050207
  Receipt Date: 20050125
  Transmission Date: 20050727
  Serious: Yes (Death)
  Sender: FDA-Public Use
  Company Number: 2005-DE-00292GD

PATIENT
  Age: 82 Year
  Sex: Female

DRUGS (2)
  1. MORPHINE SULFATE [Suspect]
     Indication: PAIN
     Dosage: SINGLE DOSE
  2. CODEINE (CODEINE) [Suspect]
     Indication: PAIN

REACTIONS (1)
  - DEATH [None]
